FAERS Safety Report 25454205 (Version 2)
Quarter: 2025Q2

REPORT INFORMATION
  Report Type: Spontaneous
  Country: GR (occurrence: GR)
  Receive Date: 20250619
  Receipt Date: 20250627
  Transmission Date: 20250716
  Serious: Yes (Other)
  Sender: CELLTRION
  Company Number: GR-ROCHE-10000180652

PATIENT

DRUGS (5)
  1. BEVACIZUMAB [Suspect]
     Active Substance: BEVACIZUMAB
     Indication: Breast cancer metastatic
     Route: 065
  2. PACLITAXEL [Suspect]
     Active Substance: PACLITAXEL
     Indication: Breast cancer metastatic
     Route: 065
  3. METHYLPREDNISOLONE [Concomitant]
     Active Substance: METHYLPREDNISOLONE
  4. METHYLPREDNISOLONE [Concomitant]
     Active Substance: METHYLPREDNISOLONE
     Route: 048
  5. OLAPARIB [Concomitant]
     Active Substance: OLAPARIB

REACTIONS (7)
  - Disease progression [Unknown]
  - Metastases to liver [Unknown]
  - Metastases to spine [Unknown]
  - Metastases to central nervous system [Unknown]
  - Breast cancer metastatic [Recovering/Resolving]
  - Demyelination [Recovering/Resolving]
  - Radiation injury [Recovering/Resolving]
